FAERS Safety Report 7109583-4 (Version None)
Quarter: 2010Q4

REPORT INFORMATION
  Report Type: 
  Country: None (occurrence: None)
  Receive Date: 20101118
  Receipt Date: 20101110
  Transmission Date: 20110411
  Serious: No
  Sender: FDA-Public Use
  Company Number: US-BIOGENIDEC-2010BI039705

PATIENT
  Age: 48 Year
  Sex: Female

DRUGS (5)
  1. AVONEX [Suspect]
     Indication: MULTIPLE SCLEROSIS
     Route: 030
     Dates: start: 19970812, end: 19990224
  2. AVONEX [Suspect]
     Route: 030
     Dates: start: 20000810, end: 20010214
  3. AVONEX [Suspect]
     Route: 030
     Dates: start: 20070501, end: 20070903
  4. AVONEX [Suspect]
     Route: 030
     Dates: start: 20080108, end: 20090801
  5. AVONEX [Suspect]
     Route: 030
     Dates: start: 20090829

REACTIONS (4)
  - BLOOD PRESSURE INCREASED [None]
  - INFLUENZA LIKE ILLNESS [None]
  - NERVOUSNESS [None]
  - PAIN [None]
